FAERS Safety Report 5052441-X (Version None)
Quarter: 2006Q3

REPORT INFORMATION
  Report Type: 
  Country: None (occurrence: None)
  Receive Date: 20060717
  Receipt Date: 20050715
  Transmission Date: 20061208
  Serious: No
  Sender: FDA-Public Use
  Company Number: US-BRISTOL-MYERS SQUIBB COMPANY-13039417

PATIENT
  Age: 58 Year
  Sex: Female
  Weight: 73 kg

DRUGS (2)
  1. ESTRACE [Suspect]
     Indication: HORMONE REPLACEMENT THERAPY
     Route: 048
     Dates: start: 19950101
  2. PROVERA [Suspect]
     Indication: HORMONE REPLACEMENT THERAPY
     Route: 048
     Dates: start: 19950101

REACTIONS (1)
  - ABDOMINAL PAIN [None]
